FAERS Safety Report 22388640 (Version 1)
Quarter: 2023Q2

REPORT INFORMATION
  Report Type: Spontaneous
  Country: CN (occurrence: CN)
  Receive Date: 20230531
  Receipt Date: 20230531
  Transmission Date: 20230722
  Serious: Yes (Other)
  Sender: FDA-Public Use
  Company Number: CN-APIL-2315543US

PATIENT
  Age: 57 Year
  Sex: Female

DRUGS (3)
  1. ACITRETIN [Suspect]
     Active Substance: ACITRETIN
     Indication: Pityriasis rubra pilaris
     Dosage: 10-20 MG/D
     Route: 065
  2. IXEKIZUMAB [Suspect]
     Active Substance: IXEKIZUMAB
     Indication: Pityriasis rubra pilaris
     Dosage: 80 MG, Q2WEEKS
     Route: 065
  3. IXEKIZUMAB [Suspect]
     Active Substance: IXEKIZUMAB
     Dosage: 160 MG, SINGLE
     Route: 065

REACTIONS (1)
  - Dermatitis exfoliative generalised [Recovered/Resolved]
